FAERS Safety Report 10586102 (Version 1)
Quarter: 2014Q4

REPORT INFORMATION
  Report Type: Spontaneous
  Country: FR (occurrence: FR)
  Receive Date: 20141115
  Receipt Date: 20141115
  Transmission Date: 20150529
  Serious: Yes (Life-Threatening, Hospitalization, Other)
  Sender: FDA-Public Use
  Company Number: FR-ASTRAZENECA-2014SE85043

PATIENT
  Age: 12780 Day
  Sex: Female
  Weight: 66 kg

DRUGS (30)
  1. CEFOTAXIME [Concomitant]
     Active Substance: CEFOTAXIME\CEFOTAXIME SODIUM
     Route: 042
     Dates: start: 20141004, end: 20141007
  2. BICARBONATE [Concomitant]
     Active Substance: BICARBONATE ION
     Route: 002
     Dates: start: 20141004, end: 20141008
  3. ZELITREX [Concomitant]
     Active Substance: VALACYCLOVIR HYDROCHLORIDE
     Route: 048
     Dates: start: 201410, end: 20141018
  4. TRIATEC [Concomitant]
     Active Substance: RAMIPRIL
     Route: 048
  5. UVEDOSE [Concomitant]
     Active Substance: CHOLECALCIFEROL
     Route: 048
     Dates: start: 20141009, end: 20141009
  6. AMPHOTERICIN B. [Concomitant]
     Active Substance: AMPHOTERICIN B
     Dates: start: 20141004, end: 20141008
  7. CONTRAMAL SR [Suspect]
     Active Substance: TRAMADOL HYDROCHLORIDE
     Dosage: 100 MG TO 200 MG QD
     Route: 048
     Dates: start: 201410
  8. INFLUVAC [Concomitant]
     Active Substance: INFLUENZA VIRUS VACCINE
     Dosage: SINGLE ADMINISTRATION
     Dates: start: 20141009, end: 20141009
  9. ACUPAN [Concomitant]
     Active Substance: NEFOPAM HYDROCHLORIDE
     Dosage: VERY OCCASIONALLY
     Dates: start: 20141009
  10. ACUPAN [Concomitant]
     Active Substance: NEFOPAM HYDROCHLORIDE
     Dosage: VERY OCCASIONALLY
     Dates: start: 20141011
  11. SODIUM BICARBONATE. [Concomitant]
     Active Substance: SODIUM BICARBONATE
     Route: 048
     Dates: start: 20141004, end: 20141015
  12. INEXIUM [Suspect]
     Active Substance: ESOMEPRAZOLE
     Route: 048
     Dates: start: 20141003
  13. CLAIRYG [Suspect]
     Active Substance: HUMAN IMMUNOGLOBULIN G
     Route: 041
     Dates: start: 20141016, end: 20141016
  14. SOLU-MEDROL [Suspect]
     Active Substance: METHYLPREDNISOLONE SODIUM SUCCINATE
     Route: 040
     Dates: start: 20141003, end: 20141005
  15. CORTANCYL [Concomitant]
     Active Substance: PREDNISONE
     Route: 048
     Dates: start: 20141007, end: 20141010
  16. LOVENOX [Concomitant]
     Active Substance: ENOXAPARIN SODIUM
     Route: 058
     Dates: start: 201410
  17. DOLITABS [Concomitant]
     Dosage: 1 G TO 2 G QD
     Route: 060
     Dates: start: 20141004, end: 20141018
  18. ACUPAN [Concomitant]
     Active Substance: NEFOPAM HYDROCHLORIDE
     Dosage: VERY OCCASIONALLY
     Dates: start: 20141008
  19. TRIATEC [Concomitant]
     Active Substance: RAMIPRIL
     Route: 048
     Dates: start: 201410
  20. LASILIX [Concomitant]
     Active Substance: FUROSEMIDE
     Dosage: IV AND THEN ORAL
     Dates: start: 20141003
  21. CLAIRYG [Suspect]
     Active Substance: HUMAN IMMUNOGLOBULIN G
     Route: 041
     Dates: start: 20141017, end: 20141017
  22. NEXPLANON [Concomitant]
     Active Substance: ETONOGESTREL
  23. CORTANCYL [Concomitant]
     Active Substance: PREDNISONE
     Route: 048
     Dates: start: 20141010
  24. FOLIC ACID CCD [Concomitant]
     Route: 048
     Dates: start: 20141004
  25. LASILIX [Concomitant]
     Active Substance: FUROSEMIDE
     Dosage: IV AND THEN ORAL
     Dates: start: 20141003
  26. BACTRIM [Concomitant]
     Active Substance: SULFAMETHOXAZOLE\TRIMETHOPRIM
     Route: 048
     Dates: start: 20141008, end: 20141009
  27. CALCIPARINE [Concomitant]
     Active Substance: HEPARIN CALCIUM
     Dosage: 5000 IU TO 10000 IU QD
     Route: 058
     Dates: start: 20141004, end: 20141013
  28. ENDOXAN [Suspect]
     Active Substance: CYCLOPHOSPHAMIDE
     Route: 042
     Dates: start: 20141007, end: 20141007
  29. PLAQUENIL [Concomitant]
     Active Substance: HYDROXYCHLOROQUINE SULFATE
     Dates: start: 20141004
  30. PREVENAR [Concomitant]
     Active Substance: PNEUMOCOCCAL 7-VALENT CONJUGATE VACCINE (DIPHTHERIA CRM197 PROTEIN)
     Dosage: SINGLE ADMINISTRATION
     Dates: start: 20141009, end: 20141009

REACTIONS (14)
  - Vomiting [Recovered/Resolved]
  - Cardiogenic shock [Recovering/Resolving]
  - Cardiac failure [Recovering/Resolving]
  - Stress cardiomyopathy [Recovering/Resolving]
  - Generalised oedema [Recovered/Resolved]
  - Hepatic function abnormal [Recovered/Resolved]
  - Abdominal pain [None]
  - Blood sodium increased [None]
  - Acute kidney injury [Unknown]
  - Encephalopathy [Recovered/Resolved]
  - Hepatic failure [Unknown]
  - Hepatojugular reflux [None]
  - Low cardiac output syndrome [Recovering/Resolving]
  - Transaminases increased [Recovering/Resolving]

NARRATIVE: CASE EVENT DATE: 20141017
